FAERS Safety Report 12381549 (Version 1)
Quarter: 2016Q2

REPORT INFORMATION
  Report Type: Spontaneous
  Country: DK (occurrence: DK)
  Receive Date: 20160518
  Receipt Date: 20160518
  Transmission Date: 20160815
  Serious: Yes (Hospitalization)
  Sender: FDA-Public Use
  Company Number: DK-JNJFOC-20160509337

PATIENT
  Age: 22 Year
  Sex: Female
  Weight: 120 kg

DRUGS (2)
  1. CILEST [Suspect]
     Active Substance: ETHINYL ESTRADIOL\NORGESTIMATE
     Indication: CONTRACEPTION
     Route: 048
     Dates: end: 201104
  2. CILEST [Suspect]
     Active Substance: ETHINYL ESTRADIOL\NORGESTIMATE
     Indication: HAEMORRHAGE
     Route: 048
     Dates: end: 201104

REACTIONS (16)
  - Abdominal pain upper [Unknown]
  - Intestinal mucosal hypertrophy [Unknown]
  - Cholangitis [Unknown]
  - Thrombosis [Recovered/Resolved with Sequelae]
  - Off label use [Unknown]
  - Product use issue [Unknown]
  - Gastric ulcer haemorrhage [Unknown]
  - Intestinal resection [Recovered/Resolved]
  - Liver disorder [Unknown]
  - Abdominal pain [Unknown]
  - Gastrointestinal necrosis [Recovered/Resolved with Sequelae]
  - Parenteral nutrition [Unknown]
  - Liver transplant [Recovered/Resolved]
  - Intestinal transplant [Recovered/Resolved]
  - Pancreas transplant [Recovered/Resolved]
  - Rectal haemorrhage [Unknown]

NARRATIVE: CASE EVENT DATE: 201104
